FAERS Safety Report 5412629-2 (Version None)
Quarter: 2007Q3

REPORT INFORMATION
  Report Type: 
  Country: None (occurrence: None)
  Receive Date: 20070813
  Receipt Date: 20070802
  Transmission Date: 20080115
  Serious: Yes (Disabling)
  Sender: FDA-Public Use
  Company Number: DE-SANOFI-SYNTHELABO-A04200701199

PATIENT
  Sex: Male

DRUGS (2)
  1. ATORVASTATIN CALCIUM [Suspect]
     Indication: CORONARY ARTERY DISEASE
     Route: 048
  2. PLAVIX [Suspect]
     Indication: CORONARY ARTERY DISEASE
     Route: 048

REACTIONS (2)
  - DYSGEUSIA [None]
  - PAROSMIA [None]
